FAERS Safety Report 23236008 (Version 1)
Quarter: 2023Q4

REPORT INFORMATION
  Report Type: Spontaneous
  Country: US (occurrence: None)
  Receive Date: 20231128
  Receipt Date: 20231128
  Transmission Date: 20240110
  Serious: No
  Sender: FDA-Public Use
  Company Number: None

PATIENT
  Age: 77 Year
  Sex: Female
  Weight: 55.79 kg

DRUGS (4)
  1. FORTEO [Suspect]
     Active Substance: TERIPARATIDE
     Indication: Rheumatoid arthritis
     Dosage: ?INJECT 200MCG SUBCUTANEOUSLY DAILY AS DIRECTED
     Route: 058
     Dates: start: 202204
  2. FORTEO [Suspect]
     Active Substance: TERIPARATIDE
     Indication: Osteoporosis
  3. ORENCIA [Suspect]
     Active Substance: ABATACEPT
     Indication: Rheumatoid arthritis
     Dosage: FREQUENCY : WEEKLY;?
     Route: 058
     Dates: start: 202112
  4. ORENCIA [Suspect]
     Active Substance: ABATACEPT
     Indication: Osteoporosis

REACTIONS (4)
  - Malaise [None]
  - Malaise [None]
  - Nausea [None]
  - Therapy interrupted [None]
